FAERS Safety Report 13982382 (Version 14)
Quarter: 2020Q4

REPORT INFORMATION
  Report Type: Report from Study
  Country: None (occurrence: IL)
  Receive Date: 20170918
  Receipt Date: 20201208
  Transmission Date: 20210113
  Serious: Yes (Death, Life-Threatening, Hospitalization, Other)
  Sender: FDA-Public Use
  Company Number: IL-ABBVIE-17K-082-2104857-00

PATIENT
  Age: 75 Year
  Sex: Male
  Weight: 50 kg

DRUGS (9)
  1. CIPRALEX [Concomitant]
     Active Substance: ESCITALOPRAM OXALATE
     Indication: AFFECTIVE DISORDER
     Route: 048
     Dates: start: 2015
  2. DISOTHIAZIDE [Concomitant]
     Active Substance: HYDROCHLOROTHIAZIDE
     Indication: HYPERTENSION
     Route: 048
     Dates: start: 2010
  3. DOPICAR [Concomitant]
     Active Substance: CARBIDOPA\LEVODOPA
     Indication: PARKINSON^S DISEASE
     Dosage: 1-QHS
     Route: 048
     Dates: start: 2007
  4. DUODOPA [Suspect]
     Active Substance: CARBIDOPA\LEVODOPA
     Indication: PARKINSON^S DISEASE
     Dosage: MD: 9ML, CD: 2.2ML/H, 16 HOURS DURATION
     Route: 050
     Dates: start: 20161114, end: 20161117
  5. SINEMET [Concomitant]
     Active Substance: CARBIDOPA\LEVODOPA
     Dosage: QHS
     Route: 048
     Dates: start: 2016
  6. DUODOPA [Suspect]
     Active Substance: CARBIDOPA\LEVODOPA
     Dosage: MD: 9 ML, CD: 1.6 ML/H, ED: 1 ML, 16 HOURS DURATION
     Route: 050
     Dates: start: 20161120
  7. CARDILOC [Concomitant]
     Active Substance: BISOPROLOL FUMARATE
     Indication: HYPERTENSION
     Route: 048
     Dates: start: 2010
  8. SINEMET [Concomitant]
     Active Substance: CARBIDOPA\LEVODOPA
     Indication: PARKINSON^S DISEASE
     Dosage: 1+1+1+1+1
     Route: 048
     Dates: start: 2015, end: 201611
  9. CLONAZEPAM. [Concomitant]
     Active Substance: CLONAZEPAM
     Indication: AGITATION
     Route: 048
     Dates: start: 20171025

REACTIONS (17)
  - Fall [Not Recovered/Not Resolved]
  - Intentional medical device removal by patient [Unknown]
  - General physical health deterioration [Unknown]
  - General physical health deterioration [Fatal]
  - Dehydration [Not Recovered/Not Resolved]
  - Mental status changes [Not Recovered/Not Resolved]
  - Hip fracture [Not Recovered/Not Resolved]
  - Decubitus ulcer [Unknown]
  - Sepsis [Not Recovered/Not Resolved]
  - Decubitus ulcer [Not Recovered/Not Resolved]
  - Pneumonia [Recovered/Resolved]
  - Decubitus ulcer [Fatal]
  - Device placement issue [Unknown]
  - Dysphagia [Not Recovered/Not Resolved]
  - Bacterial sepsis [Fatal]
  - Infected skin ulcer [Not Recovered/Not Resolved]
  - Depression [Not Recovered/Not Resolved]

NARRATIVE: CASE EVENT DATE: 201709
